FAERS Safety Report 6669703-2 (Version None)
Quarter: 2010Q2

REPORT INFORMATION
  Report Type: 
  Country: None (occurrence: None)
  Receive Date: 20100406
  Receipt Date: 20100326
  Transmission Date: 20101027
  Serious: Yes (Other)
  Sender: FDA-Public Use
  Company Number: BR-GENENTECH-290874

PATIENT
  Sex: Female

DRUGS (1)
  1. LUCENTIS [Suspect]
     Indication: DRUG USE FOR UNKNOWN INDICATION
     Dosage: 10 MG/ML, UNKNOWN
     Route: 031

REACTIONS (3)
  - ANTERIOR CHAMBER CELL [None]
  - OCULAR HYPERTENSION [None]
  - VITRITIS [None]
